FAERS Safety Report 11776387 (Version 3)
Quarter: 2016Q1

REPORT INFORMATION
  Report Type: Spontaneous
  Country: US (occurrence: US)
  Receive Date: 20151125
  Receipt Date: 20160104
  Transmission Date: 20160525
  Serious: No
  Sender: FDA-Public Use
  Company Number: US-TEVA-611629ACC

PATIENT
  Age: 30 Year
  Sex: Female
  Weight: 84.44 kg

DRUGS (2)
  1. ONE-A DAY VITAMINS [Concomitant]
     Indication: SUPPLEMENTATION THERAPY
  2. TAKE ACTION [Suspect]
     Active Substance: LEVONORGESTREL
     Indication: POST COITAL CONTRACEPTION
     Dates: start: 20151109, end: 20151109

REACTIONS (2)
  - Vaginal haemorrhage [Not Recovered/Not Resolved]
  - Menstruation delayed [Recovered/Resolved]

NARRATIVE: CASE EVENT DATE: 20151116
